FAERS Safety Report 5959774-0 (Version None)
Quarter: 2008Q4

REPORT INFORMATION
  Report Type: 
  Country: None (occurrence: None)
  Receive Date: 20081119
  Receipt Date: 20081119
  Transmission Date: 20090506
  Serious: Yes (Hospitalization)
  Sender: FDA-Public Use
  Company Number: None

PATIENT
  Sex: Female
  Weight: 82 kg

DRUGS (1)
  1. BACTRIM DS [Suspect]
     Indication: UPPER RESPIRATORY TRACT INFECTION
     Dosage: 800 MG/160 MG  TWICE DAILY PO
     Route: 048
     Dates: start: 20071101, end: 20071108

REACTIONS (5)
  - PETECHIAE [None]
  - PLATELET COUNT DECREASED [None]
  - RASH ERYTHEMATOUS [None]
  - RASH GENERALISED [None]
  - RASH MACULO-PAPULAR [None]
